FAERS Safety Report 17934330 (Version 1)
Quarter: 2020Q2

REPORT INFORMATION
  Report Type: Spontaneous
  Country: US (occurrence: US)
  Receive Date: 20200623
  Receipt Date: 20200623
  Transmission Date: 20200714
  Serious: Yes (Death)
  Sender: FDA-Public Use
  Company Number: None

PATIENT
  Age: 73 Year
  Sex: Female
  Weight: 92.2 kg

DRUGS (12)
  1. MUPIROCIN (NASAL) [Concomitant]
     Dates: start: 20200618, end: 20200621
  2. CHLORHEXIDINE TOPICAL [Concomitant]
     Dates: start: 20200618, end: 20200621
  3. HEPARIN [Concomitant]
     Active Substance: HEPARIN SODIUM
     Dates: start: 20200620, end: 20200621
  4. POTASSIUM PHOSPHATE [Concomitant]
     Active Substance: POTASSIUM PHOSPHATE
     Dates: start: 20200620, end: 20200620
  5. POTASSIUM CHLORIDE. [Concomitant]
     Active Substance: POTASSIUM CHLORIDE
     Dates: start: 20200620, end: 20200620
  6. REMDESIVIR. [Suspect]
     Active Substance: REMDESIVIR
     Indication: COVID-19
     Dosage: ?          OTHER FREQUENCY:ONCE;?
     Route: 040
     Dates: start: 20200620, end: 20200620
  7. CEFEPIME [Concomitant]
     Active Substance: CEFEPIME HYDROCHLORIDE
     Dates: start: 20200618, end: 20200621
  8. METRONIDZOLE [Concomitant]
     Dates: start: 20200618, end: 20200621
  9. NOREPHRINEPINE [Concomitant]
     Dates: start: 20200618, end: 20200621
  10. FAMOTIDINE. [Concomitant]
     Active Substance: FAMOTIDINE
     Dates: start: 20200619, end: 20200621
  11. INSULIN LISPRO [Concomitant]
     Active Substance: INSULIN LISPRO
     Dates: start: 20200618, end: 20200621
  12. VANCOMYCIN IV [Concomitant]
     Active Substance: VANCOMYCIN HYDROCHLORIDE
     Dates: start: 20200620, end: 20200620

REACTIONS (1)
  - Hospice care [None]

NARRATIVE: CASE EVENT DATE: 20200621
